FAERS Safety Report 18635919 (Version 4)
Quarter: 2021Q1

REPORT INFORMATION
  Report Type: Report from Study
  Country: None (occurrence: EG)
  Receive Date: 20201218
  Receipt Date: 20210121
  Transmission Date: 20210419
  Serious: Yes (Hospitalization, Other)
  Sender: FDA-Public Use
  Company Number: EG-ABBVIE-20K-048-3699332-00

PATIENT
  Age: 63 Year
  Sex: Male
  Weight: 90 kg

DRUGS (12)
  1. ATORSTAT [Concomitant]
     Active Substance: ATORVASTATIN CALCIUM
     Indication: CARDIAC DISORDER
  2. IMBRUVICA [Suspect]
     Active Substance: IBRUTINIB
     Indication: CHRONIC LYMPHOCYTIC LEUKAEMIA
     Route: 048
     Dates: start: 20200701
  3. IMBRUVICA [Suspect]
     Active Substance: IBRUTINIB
     Route: 048
     Dates: start: 20201222
  4. IMBRUVICA [Suspect]
     Active Substance: IBRUTINIB
     Route: 048
  5. IMBRUVICA [Suspect]
     Active Substance: IBRUTINIB
     Route: 048
     Dates: start: 20201107
  6. IMBRUVICA [Suspect]
     Active Substance: IBRUTINIB
     Dosage: ONE CAPSULE IN THE MORNING AND ONE CAPSULE AT NIGHT
     Route: 048
  7. IMBRUVICA [Suspect]
     Active Substance: IBRUTINIB
     Dosage: 3 CAPSULES OF IMBRUVICA IN THE MORNING
     Route: 048
     Dates: start: 20201205
  8. IMBRUVICA [Suspect]
     Active Substance: IBRUTINIB
     Dosage: ONE CAPSULE IN THE MORNING AND ONE CAPSULE AT NIGHT
     Route: 048
  9. NITROGARD [Concomitant]
     Indication: CARDIAC DISORDER
  10. EPREX [Concomitant]
     Active Substance: ERYTHROPOIETIN
     Indication: ANAEMIA
  11. EGYPRO [Concomitant]
     Indication: CARDIAC DISORDER
  12. CLOVIX [CLOPIDOGREL] [Concomitant]
     Indication: ANTICOAGULANT THERAPY

REACTIONS (15)
  - Epistaxis [Recovering/Resolving]
  - Inappropriate schedule of product administration [Unknown]
  - Fatigue [Recovering/Resolving]
  - Fall [Unknown]
  - Furuncle [Recovered/Resolved]
  - Product storage error [Unknown]
  - Tongue discolouration [Unknown]
  - Vomiting [Recovering/Resolving]
  - Mouth haemorrhage [Recovering/Resolving]
  - Furuncle [Unknown]
  - Intervertebral disc protrusion [Unknown]
  - Decreased appetite [Recovered/Resolved]
  - Product dose omission issue [Unknown]
  - Off label use [Unknown]
  - Chills [Recovered/Resolved]

NARRATIVE: CASE EVENT DATE: 202007
